FAERS Safety Report 9866410 (Version 6)
Quarter: 2014Q3

REPORT INFORMATION
  Report Type: Report from Study
  Country: CA (occurrence: CA)
  Receive Date: 20140204
  Receipt Date: 20140729
  Transmission Date: 20150326
  Serious: Yes (Hospitalization, Other)
  Sender: FDA-Public Use
  Company Number: CA-ROCHE-1340225

PATIENT
  Age: 74 Year
  Sex: Male
  Weight: 82.2 kg

DRUGS (12)
  1. ALLOPURINOL. [Concomitant]
     Active Substance: ALLOPURINOL
  2. AVODART [Concomitant]
     Active Substance: DUTASTERIDE
  3. CYCLOPHOSPHAMIDE. [Concomitant]
     Active Substance: CYCLOPHOSPHAMIDE
     Dosage: 6 CYCLES COMPLETED
     Route: 065
     Dates: end: 201112
  4. VINCRISTINE [Concomitant]
     Active Substance: VINCRISTINE
     Dosage: 6 CYCLES OF CHEMOTHERPY
     Route: 065
     Dates: end: 201112
  5. RITUXAN [Suspect]
     Active Substance: RITUXIMAB
     Indication: IMMUNE THROMBOCYTOPENIC PURPURA
     Dosage: R-CVP 6 CYCLES COMPLETED
     Route: 042
     Dates: start: 20110908, end: 20140327
  6. FOLIC ACID. [Concomitant]
     Active Substance: FOLIC ACID
  7. TAMSULOSIN [Concomitant]
     Active Substance: TAMSULOSIN
  8. PREDNISONE. [Concomitant]
     Active Substance: PREDNISONE
     Route: 065
     Dates: end: 201112
  9. RITUXAN [Suspect]
     Active Substance: RITUXIMAB
     Dosage: R-WP X 6 CYCLES
     Route: 042
  10. DECADRON [Concomitant]
     Active Substance: DEXAMETHASONE
  11. RABEPRAZOLE [Concomitant]
     Active Substance: RABEPRAZOLE
  12. ALENDRONATE [Concomitant]
     Active Substance: ALENDRONATE SODIUM

REACTIONS (6)
  - Off label use [Unknown]
  - Abdominal discomfort [Recovered/Resolved]
  - White blood cell count increased [Unknown]
  - Bacterial sepsis [Recovered/Resolved]
  - Nasopharyngitis [Recovering/Resolving]
  - Febrile neutropenia [Recovered/Resolved]

NARRATIVE: CASE EVENT DATE: 201403
